FAERS Safety Report 11142563 (Version 2)
Quarter: 2015Q2

REPORT INFORMATION
  Report Type: Report from Study
  Country: DE (occurrence: PL)
  Receive Date: 20150527
  Receipt Date: 20150603
  Transmission Date: 20150821
  Serious: Yes (Death, Hospitalization, Other)
  Sender: FDA-Public Use
  Company Number: DE-ACTELION-A-NJ2015-118585

PATIENT
  Age: 75 Year
  Sex: Female

DRUGS (3)
  1. CLEMASTIN [Concomitant]
     Active Substance: CLEMASTINE
  2. FUROSEMIDE. [Concomitant]
     Active Substance: FUROSEMIDE
  3. VENTAVIS [Suspect]
     Active Substance: ILOPROST
     Indication: PRODUCT USED FOR UNKNOWN INDICATION
     Dosage: 1 DF 6XDAILY
     Route: 055
     Dates: start: 20150518

REACTIONS (5)
  - Fall [Unknown]
  - Loss of consciousness [Unknown]
  - Haematoma [Fatal]
  - Head injury [Unknown]
  - Drug interaction [Unknown]

NARRATIVE: CASE EVENT DATE: 20150521
